FAERS Safety Report 7510311-9 (Version None)
Quarter: 2011Q2

REPORT INFORMATION
  Report Type: 
  Country: None (occurrence: None)
  Receive Date: 20110527
  Receipt Date: 20110517
  Transmission Date: 20111010
  Serious: Yes (Hospitalization, Other)
  Sender: FDA-Public Use
  Company Number: US-ASTRAZENECA-2011SE29846

PATIENT
  Age: 40 Year
  Sex: Female
  Weight: 46.7 kg

DRUGS (11)
  1. HYDROCODONE BITARTRATE [Concomitant]
     Indication: BACK PAIN
  2. PAXIL [Concomitant]
     Indication: DEPRESSION
  3. INTEGRA [Concomitant]
     Indication: MINERAL SUPPLEMENTATION
  4. GOODY POWDER [Suspect]
  5. HYDROCODONE BITARTRATE [Concomitant]
     Indication: PAIN IN EXTREMITY
  6. SEROQUEL XR [Suspect]
     Route: 048
  7. NEXIUM [Concomitant]
     Route: 048
  8. ALLEGRA [Concomitant]
     Indication: MULTIPLE ALLERGIES
  9. SYMBICORT [Concomitant]
     Indication: CHRONIC OBSTRUCTIVE PULMONARY DISEASE
     Dosage: 160/4.5 PRN
     Route: 055
  10. LUNESTA [Concomitant]
     Indication: SLEEP DISORDER
  11. XANEX [Concomitant]
     Indication: ANXIETY

REACTIONS (2)
  - GASTRIC ULCER SURGERY [None]
  - GASTRIC ULCER [None]
